FAERS Safety Report 17184510 (Version 1)
Quarter: 2019Q4

REPORT INFORMATION
  Report Type: Spontaneous
  Country: US (occurrence: US)
  Receive Date: 20191220
  Receipt Date: 20191220
  Transmission Date: 20200122
  Serious: No
  Sender: FDA-Public Use
  Company Number: US-PFIZER INC-2019546010

PATIENT
  Age: 57 Year
  Sex: Female
  Weight: 81.65 kg

DRUGS (1)
  1. NIZATIDINE. [Suspect]
     Active Substance: NIZATIDINE
     Indication: GASTROOESOPHAGEAL REFLUX DISEASE
     Dosage: 150 MG, 2X/DAY
     Route: 048
     Dates: end: 20191203

REACTIONS (2)
  - Dysphagia [Unknown]
  - Throat irritation [Unknown]
